FAERS Safety Report 22377866 (Version 1)
Quarter: 2023Q2

REPORT INFORMATION
  Report Type: Report from Study
  Country: DE (occurrence: DE)
  Receive Date: 20230529
  Receipt Date: 20230529
  Transmission Date: 20230721
  Serious: Yes (Other)
  Sender: FDA-Public Use
  Company Number: DE-JNJFOC-20230554282

PATIENT

DRUGS (1)
  1. IMBRUVICA [Suspect]
     Active Substance: IBRUTINIB
     Indication: Chronic lymphocytic leukaemia
     Route: 048

REACTIONS (8)
  - Granulocytopenia [Unknown]
  - Tumour lysis syndrome [Unknown]
  - Diarrhoea [Unknown]
  - Oedema peripheral [Unknown]
  - Immunosuppression [Unknown]
  - Infection [Unknown]
  - Toxicity to various agents [Unknown]
  - Dyspnoea [Unknown]
